FAERS Safety Report 10645708 (Version 3)
Quarter: 2015Q1

REPORT INFORMATION
  Report Type: Report from Study
  Country: MX (occurrence: MX)
  Receive Date: 20141211
  Receipt Date: 20150112
  Transmission Date: 20150720
  Serious: Yes (Other)
  Sender: FDA-Public Use
  Company Number: PHHY2011MX100051

PATIENT
  Age: 74 Year
  Sex: Female

DRUGS (5)
  1. DIOVAN [Suspect]
     Active Substance: VALSARTAN
     Dosage: 1.5 DF QD, 1 TABLET AT NIGHT AND 0.5 DF AT NIGHT
     Route: 065
  2. CINNARIZINE [Concomitant]
     Active Substance: CINNARIZINE
     Indication: PRODUCT USED FOR UNKNOWN INDICATION
     Dosage: UNK DF, UNK
     Route: 065
  3. CINNARIZINE [Concomitant]
     Active Substance: CINNARIZINE
     Dosage: 1 DF, QOD
     Route: 065
  4. DIOVAN [Suspect]
     Active Substance: VALSARTAN
     Indication: HYPERTENSION
     Dosage: 1 DF QD AT NIGHT
     Route: 048
  5. RASILEZ (ALISKIREN) [Concomitant]
     Indication: PRODUCT USED FOR UNKNOWN INDICATION
     Dosage: 0.5 DF, QD
     Route: 065

REACTIONS (11)
  - Fear [Recovered/Resolved]
  - Fall [Unknown]
  - Listless [Recovered/Resolved]
  - Disorientation [Recovered/Resolved]
  - Wrong technique in drug usage process [Recovered/Resolved]
  - Vertigo [Recovered/Resolved]
  - Off label use [Unknown]
  - Neuropathy peripheral [Not Recovered/Not Resolved]
  - Bone fissure [Not Recovered/Not Resolved]
  - Ligament sprain [Not Recovered/Not Resolved]
  - Malaise [Recovered/Resolved]

NARRATIVE: CASE EVENT DATE: 20111104
